FAERS Safety Report 4759145-9 (Version None)
Quarter: 2005Q3

REPORT INFORMATION
  Report Type: 
  Country: None (occurrence: None)
  Receive Date: 20050831
  Receipt Date: 20050817
  Transmission Date: 20060218
  Serious: Yes (Hospitalization)
  Sender: FDA-Public Use
  Company Number: S05-FRA-03152-01

PATIENT
  Age: 30 Year
  Sex: Male

DRUGS (14)
  1. SEROPLEX (ESCITALOPRAM) [Suspect]
     Dosage: 10 MG QD PO
     Route: 048
     Dates: start: 20050101, end: 20050801
  2. RISPERDAL [Suspect]
     Dates: end: 20050801
  3. RISPERDAL [Suspect]
     Dates: start: 20050801
  4. LEXOMIL (BROMAZEPAM) [Suspect]
     Dates: end: 20050801
  5. LEXOMIL (BROMAZEPAM) [Suspect]
     Dates: start: 20050801
  6. TRANXENE [Suspect]
     Dates: end: 20050801
  7. TRANXENE [Suspect]
     Dates: start: 20050801
  8. STILNOX (ZOLPIDEM) [Suspect]
     Dates: end: 20050801
  9. STILNOX (ZOLPIDEM) [Suspect]
     Dates: start: 20050801
  10. ATARAX [Suspect]
     Dates: end: 20050801
  11. ATARAX [Suspect]
     Dates: start: 20050801
  12. ATHYMIL (MIANSERIN HYDROCHLORIDE) [Suspect]
     Dates: end: 20050801
  13. ATHYMIL (MIANSERIN HYDROCHLORIDE) [Suspect]
     Dates: start: 20050801
  14. INSULIN [Concomitant]

REACTIONS (3)
  - HYPERTRIGLYCERIDAEMIA [None]
  - MICROLITHIASIS [None]
  - PANCREATITIS ACUTE [None]
